FAERS Safety Report 21292433 (Version 1)
Quarter: 2022Q3

REPORT INFORMATION
  Report Type: Spontaneous
  Country: BE (occurrence: BE)
  Receive Date: 20220905
  Receipt Date: 20220905
  Transmission Date: 20221027
  Serious: Yes (Other)
  Sender: FDA-Public Use
  Company Number: BE-DAIICHI SANKYO EUROPE GMBH-DSE-2022-130118

PATIENT
  Age: 60 Year
  Sex: Male
  Weight: 106 kg

DRUGS (5)
  1. BEMPEDOIC ACID [Suspect]
     Active Substance: BEMPEDOIC ACID
     Indication: Hypercholesterolaemia
     Dosage: 180 MG, QD
     Route: 048
     Dates: start: 20220505, end: 20220810
  2. PANTOPRAZOLE SODIUM [Concomitant]
     Active Substance: PANTOPRAZOLE SODIUM
     Indication: Gastrooesophageal reflux disease
     Dosage: 80 MG, }10D
     Route: 048
  3. OXYBUTYNIN [Concomitant]
     Active Substance: OXYBUTYNIN
     Indication: Hyperhidrosis
     Dosage: 5 MG
     Route: 048
     Dates: start: 2020
  4. ALLOPURINOL [Concomitant]
     Active Substance: ALLOPURINOL
     Indication: Hyperuricaemia
     Dosage: 100 MG, }5D
     Route: 048
  5. BECLOMETHASONE DIPROPIONATE\FORMOTEROL FUMARATE [Concomitant]
     Active Substance: BECLOMETHASONE DIPROPIONATE\FORMOTEROL FUMARATE
     Indication: Asthma
     Dosage: 100 MG, 1 YEAR, PUFF

REACTIONS (1)
  - Serum ferritin increased [Recovering/Resolving]

NARRATIVE: CASE EVENT DATE: 20220714
